FAERS Safety Report 21148900 (Version 1)
Quarter: 2022Q3

REPORT INFORMATION
  Report Type: Spontaneous
  Country: US (occurrence: None)
  Receive Date: 20220729
  Receipt Date: 20220729
  Transmission Date: 20221027
  Serious: Yes (Disabling)
  Sender: FDA-Public Use
  Company Number: None

PATIENT
  Age: 16 Year
  Sex: Female
  Weight: 49.5 kg

DRUGS (1)
  1. SPIRONOLACTONE [Suspect]
     Active Substance: SPIRONOLACTONE
     Indication: Acne

REACTIONS (10)
  - Back pain [None]
  - Musculoskeletal disorder [None]
  - Pain in extremity [None]
  - Intervertebral disc protrusion [None]
  - Intervertebral disc protrusion [None]
  - Thyroid mass [None]
  - Nerve compression [None]
  - Blood testosterone decreased [None]
  - Thyroid hormones increased [None]
  - Thyroid cyst [None]

NARRATIVE: CASE EVENT DATE: 20180215
